FAERS Safety Report 8338436-9 (Version None)
Quarter: 2012Q2

REPORT INFORMATION
  Report Type: 
  Country: None (occurrence: None)
  Receive Date: 20120504
  Receipt Date: 20120423
  Transmission Date: 20120825
  Serious: Yes (Other)
  Sender: FDA-Public Use
  Company Number: DE-ROCHE-1011703

PATIENT
  Sex: Male

DRUGS (6)
  1. AMIODARONE HCL [Concomitant]
     Dates: start: 20010101
  2. LUCENTIS [Suspect]
     Route: 050
     Dates: start: 20120411
  3. AMIODARONE HCL [Concomitant]
     Dates: start: 20110901
  4. LUCENTIS [Suspect]
     Route: 050
  5. LUCENTIS [Suspect]
     Indication: AGE-RELATED MACULAR DEGENERATION
     Route: 050
     Dates: start: 20110901
  6. LUCENTIS [Suspect]
     Route: 050
     Dates: start: 20110901

REACTIONS (1)
  - ARRHYTHMIA [None]
